FAERS Safety Report 25540110 (Version 1)
Quarter: 2025Q3

REPORT INFORMATION
  Report Type: Spontaneous
  Country: CN (occurrence: CN)
  Receive Date: 20250710
  Receipt Date: 20250710
  Transmission Date: 20251021
  Serious: Yes (Death, Hospitalization, Other)
  Sender: ORGANON
  Company Number: CN-ORGANON-O2507CHN001016

PATIENT
  Age: 68 Year
  Sex: Male
  Weight: 57.5 kg

DRUGS (4)
  1. TOCILIZUMAB-BAVI [Suspect]
     Active Substance: TOCILIZUMAB-BAVI
     Indication: Rheumatoid arthritis
     Dosage: 400 MG, ONCE A MONTH
     Route: 042
     Dates: start: 20250506, end: 20250604
  2. HERBALS [Concomitant]
     Active Substance: HERBALS
     Indication: Rheumatoid arthritis
     Dosage: 20 MG, BID
     Route: 048
     Dates: start: 20250504, end: 20250604
  3. LEFLUNOMIDE [Concomitant]
     Active Substance: LEFLUNOMIDE
     Indication: Rheumatoid arthritis
     Dosage: 20 MG, QD
     Route: 048
     Dates: start: 20250504, end: 20250604
  4. PREDNISONE [Concomitant]
     Active Substance: PREDNISONE
     Indication: Rheumatoid arthritis
     Dosage: 5 MG, BID
     Route: 048
     Dates: start: 20250504, end: 20250604

REACTIONS (1)
  - Staphylococcal sepsis [Fatal]

NARRATIVE: CASE EVENT DATE: 20250605
